FAERS Safety Report 15342928 (Version 3)
Quarter: 2019Q2

REPORT INFORMATION
  Report Type: Report from Study
  Country: CA (occurrence: CA)
  Receive Date: 20180903
  Receipt Date: 20190612
  Transmission Date: 20190711
  Serious: Yes (Hospitalization, Other)
  Sender: FDA-Public Use
  Company Number: CA-TOLMAR, INC.-2018CA008648

PATIENT

DRUGS (1)
  1. ELIGARD [Suspect]
     Active Substance: LEUPROLIDE ACETATE
     Indication: PROSTATE CANCER
     Dosage: 45 MG, EVERY 6 MONTHS
     Route: 065
     Dates: start: 20180418

REACTIONS (4)
  - Lung neoplasm [Unknown]
  - Brain neoplasm [Unknown]
  - Metastases to bone [Unknown]
  - Renal cancer [Unknown]

NARRATIVE: CASE EVENT DATE: 2018
